FAERS Safety Report 4704662-0 (Version None)
Quarter: 2005Q2

REPORT INFORMATION
  Report Type: 
  Country: None (occurrence: None)
  Receive Date: 20050629
  Receipt Date: 20050620
  Transmission Date: 20051028
  Serious: Yes (Death, Hospitalization)
  Sender: FDA-Public Use
  Company Number: 2005-04-0043

PATIENT
  Age: 66 Year
  Sex: Male

DRUGS (8)
  1. PEG-INTRON [Suspect]
     Indication: HEPATITIS C
     Dosage: 180 MCG SUBCUTANEOUS
     Route: 058
     Dates: start: 20050125, end: 20050218
  2. REBETOL [Suspect]
     Indication: HEPATITIS C
     Dosage: 60 MG BID ORAL
     Route: 048
     Dates: start: 20050125, end: 20050218
  3. OMEPRAZOLE [Concomitant]
  4. FRUSEMIDE [Concomitant]
  5. THIAMINE [Concomitant]
  6. PAROXETINE HCL [Concomitant]
  7. METHADONE [Concomitant]
  8. SALBUTAMOL (ALBUTEROL) [Concomitant]

REACTIONS (5)
  - ENCEPHALOPATHY [None]
  - HEPATIC CIRRHOSIS [None]
  - HYPOTENSION [None]
  - HYPOTHERMIA [None]
  - RENAL FAILURE ACUTE [None]
